FAERS Safety Report 10362971 (Version 2)
Quarter: 2015Q1

REPORT INFORMATION
  Report Type: Spontaneous
  Country: IT (occurrence: IT)
  Receive Date: 20140805
  Receipt Date: 20140805
  Transmission Date: 20150720
  Serious: Yes (Other)
  Sender: FDA-Public Use
  Company Number: IT-ACTAVIS-2014-16725

PATIENT
  Age: 56 Year
  Sex: Female

DRUGS (5)
  1. CARBOPLATIN (UNKNOWN) [Suspect]
     Active Substance: CARBOPLATIN
     Indication: PERITONEAL CARCINOMA METASTATIC
     Dosage: 450 MG, CYCLICAL
     Route: 042
     Dates: start: 20140613, end: 20140613
  2. MODURETIC 5-50 [Concomitant]
     Active Substance: AMILORIDE HYDROCHLORIDE\HYDROCHLOROTHIAZIDE
     Indication: PRODUCT USED FOR UNKNOWN INDICATION
  3. CARDURA [Concomitant]
     Active Substance: DOXAZOSIN MESYLATE
     Indication: PRODUCT USED FOR UNKNOWN INDICATION
  4. LOBIVON [Concomitant]
     Active Substance: NEBIVOLOL HYDROCHLORIDE
     Indication: PRODUCT USED FOR UNKNOWN INDICATION
  5. PACLITAXEL (UNKNOWN) [Suspect]
     Active Substance: PACLITAXEL
     Indication: PERITONEAL CARCINOMA METASTATIC
     Dosage: 220 MG, CYCLICAL
     Route: 042
     Dates: start: 20140613, end: 20140613

REACTIONS (2)
  - Anaemia [Recovering/Resolving]
  - Neutropenia [Recovering/Resolving]

NARRATIVE: CASE EVENT DATE: 20140624
